FAERS Safety Report 15667599 (Version 1)
Quarter: 2018Q4

REPORT INFORMATION
  Report Type: Spontaneous
  Country: JP (occurrence: JP)
  Receive Date: 20181128
  Receipt Date: 20181128
  Transmission Date: 20190205
  Serious: Yes (Hospitalization, Other)
  Sender: FDA-Public Use
  Company Number: JP-009507513-1811JPN002456J

PATIENT
  Age: 67 Year
  Sex: Male

DRUGS (2)
  1. BELSOMRA [Suspect]
     Active Substance: SUVOREXANT
     Indication: SUICIDE ATTEMPT
     Dosage: 450 MILLIGRAM, QD
     Route: 048
     Dates: start: 20181107
  2. BELSOMRA [Suspect]
     Active Substance: SUVOREXANT
     Dosage: 30 TABLETS ONES
     Dates: start: 20181117

REACTIONS (2)
  - Suicide attempt [Recovered/Resolved]
  - Intentional overdose [Recovered/Resolved]

NARRATIVE: CASE EVENT DATE: 20181117
